FAERS Safety Report 24781451 (Version 1)
Quarter: 2024Q4

REPORT INFORMATION
  Report Type: Spontaneous
  Country: US (occurrence: US)
  Receive Date: 20241227
  Receipt Date: 20241227
  Transmission Date: 20250114
  Serious: Yes (Life-Threatening, Hospitalization)
  Sender: HIKMA
  Company Number: US-MLMSERVICE-20241212-PI296927-00329-1

PATIENT

DRUGS (2)
  1. VANCOMYCIN [Suspect]
     Active Substance: VANCOMYCIN
     Indication: Brain abscess
     Dosage: UNKNOWN, DOSE WAS REDUCED AND THEN DISCONTINUED
     Route: 042
  2. CEFTRIAXONE [Concomitant]
     Active Substance: CEFTRIAXONE
     Indication: Brain abscess
     Dosage: UNKNOWN
     Route: 042

REACTIONS (3)
  - Drug reaction with eosinophilia and systemic symptoms [Recovering/Resolving]
  - Drug level increased [Unknown]
  - Hepatic enzyme increased [Unknown]
